FAERS Safety Report 25236008 (Version 1)
Quarter: 2025Q2

REPORT INFORMATION
  Report Type: Spontaneous
  Country: US (occurrence: US)
  Receive Date: 20250424
  Receipt Date: 20250424
  Transmission Date: 20250717
  Serious: No
  Sender: MERCK SHARP & DOHME LLC
  Company Number: US-009507513-2273940

PATIENT
  Sex: Female
  Weight: 68.9 kg

DRUGS (27)
  1. SOTATERCEPT [Suspect]
     Active Substance: SOTATERCEPT
  2. SOTATERCEPT [Suspect]
     Active Substance: SOTATERCEPT
  3. SOTATERCEPT [Suspect]
     Active Substance: SOTATERCEPT
  4. SOTATERCEPT [Suspect]
     Active Substance: SOTATERCEPT
  5. VITAMIN C [Concomitant]
     Active Substance: ASCORBIC ACID
  6. METOLAZONE [Concomitant]
     Active Substance: METOLAZONE
  7. MIRABEGRON [Concomitant]
     Active Substance: MIRABEGRON
  8. SODIUM CHLORIDE [Concomitant]
     Active Substance: SODIUM CHLORIDE
  9. OPSUMIT [Concomitant]
     Active Substance: MACITENTAN
  10. LASIX [Concomitant]
     Active Substance: FUROSEMIDE
  11. SILDENAFIL [Concomitant]
     Active Substance: SILDENAFIL
  12. REMODULIN [Suspect]
     Active Substance: TREPROSTINIL
     Indication: Pulmonary arterial hypertension
     Route: 041
     Dates: start: 20171102
  13. FAMOTIDINE [Concomitant]
     Active Substance: FAMOTIDINE
  14. PROAIR HFA [Concomitant]
     Active Substance: ALBUTEROL SULFATE
  15. FORTEO [Concomitant]
     Active Substance: TERIPARATIDE
  16. OXYGEN [Concomitant]
     Active Substance: OXYGEN
  17. SPIRONOLACTONE [Concomitant]
     Active Substance: SPIRONOLACTONE
  18. POTASSIUM CHLORIDE [Concomitant]
     Active Substance: POTASSIUM CHLORIDE
  19. VITAMIN D3 [Concomitant]
     Active Substance: CHOLECALCIFEROL
  20. OMEPRAZOLE [Concomitant]
     Active Substance: OMEPRAZOLE
  21. SYMBICORT [Concomitant]
     Active Substance: BUDESONIDE\FORMOTEROL FUMARATE DIHYDRATE
  22. ESTRADIOL [Concomitant]
     Active Substance: ESTRADIOL
  23. MAGNESIUM OXIDE [Concomitant]
     Active Substance: MAGNESIUM OXIDE
  24. COLESTIPOL HYDROCHLORIDE [Concomitant]
     Active Substance: COLESTIPOL HYDROCHLORIDE
  25. ESOMEPRAZOLE MAGNESIUM [Concomitant]
     Active Substance: ESOMEPRAZOLE MAGNESIUM
  26. Echinacea + goldenseal [Concomitant]
  27. MYRBETRIQ [Concomitant]
     Active Substance: MIRABEGRON

REACTIONS (2)
  - Skin discolouration [Recovered/Resolved]
  - Spider vein [Unknown]
